FAERS Safety Report 14596967 (Version 2)
Quarter: 2018Q1

REPORT INFORMATION
  Report Type: Spontaneous
  Country: US (occurrence: US)
  Receive Date: 20180305
  Receipt Date: 20180309
  Transmission Date: 20180509
  Serious: No
  Sender: FDA-Public Use
  Company Number: US-AMGEN-USASP2018027872

PATIENT
  Age: 68 Year
  Sex: Male
  Weight: 99.77 kg

DRUGS (4)
  1. XELJANZ XR [Concomitant]
     Active Substance: TOFACITINIB CITRATE
     Indication: ARTHRITIS
     Dosage: 11 MG, QD
     Route: 048
     Dates: start: 201704
  2. CIMZIA [Suspect]
     Active Substance: CERTOLIZUMAB PEGOL
     Indication: ARTHRITIS
     Dosage: UNK
     Route: 065
  3. ENBREL [Suspect]
     Active Substance: ETANERCEPT
     Indication: RHEUMATOID ARTHRITIS
     Dosage: 50 MG, QWK
     Route: 065
     Dates: start: 2013, end: 201503
  4. HYDROCODONE [Suspect]
     Active Substance: HYDROCODONE
     Indication: ARTHRITIS
     Dosage: 10 MG, 4 OR 5 TABLETS, QD
     Route: 048

REACTIONS (3)
  - Drug ineffective [Unknown]
  - Weight increased [Unknown]
  - Arthritis [Not Recovered/Not Resolved]
